FAERS Safety Report 7039934-0 (Version None)
Quarter: 2010Q4

REPORT INFORMATION
  Report Type: 
  Country: None (occurrence: None)
  Receive Date: 20101012
  Receipt Date: 20100930
  Transmission Date: 20110411
  Serious: Yes (Other)
  Sender: FDA-Public Use
  Company Number: VE-PFIZER INC-2010124687

PATIENT
  Age: 13 Year
  Sex: Male
  Weight: 29 kg

DRUGS (1)
  1. GENOTROPIN [Suspect]
     Indication: GROWTH HORMONE DEFICIENCY
     Dosage: 1 MG, 1X/DAY
     Route: 058
     Dates: start: 20100901

REACTIONS (2)
  - INCORRECT DOSE ADMINISTERED [None]
  - SWELLING FACE [None]
